FAERS Safety Report 4394527-9 (Version None)
Quarter: 2004Q3

REPORT INFORMATION
  Report Type: 
  Country: None (occurrence: None)
  Receive Date: 20040709
  Receipt Date: 20040709
  Transmission Date: 20050211
  Serious: Yes (Hospitalization)
  Sender: FDA-Public Use
  Company Number: None

PATIENT
  Age: 55 Year
  Sex: Male

DRUGS (4)
  1. FELDENE [Suspect]
     Indication: OSTEOARTHRITIS
     Dosage: 20 MG DAILY ORAL
     Route: 048
  2. VERAPAMIL [Concomitant]
  3. ALTACE [Concomitant]
  4. ASPIRIN [Concomitant]

REACTIONS (4)
  - BARRETT'S OESOPHAGUS [None]
  - GASTRIC ULCER [None]
  - HAEMATEMESIS [None]
  - MELAENA [None]
